FAERS Safety Report 5587527-4 (Version None)
Quarter: 2007Q4

REPORT INFORMATION
  Report Type: 
  Country: None (occurrence: None)
  Receive Date: 20071207
  Receipt Date: 20070817
  Transmission Date: 20080405
  Serious: Yes (Other)
  Sender: FDA-Public Use
  Company Number: 2007068538

PATIENT
  Age: 22 Year
  Sex: Male
  Weight: 77.27 kg

DRUGS (1)
  1. VIAGRA [Suspect]
     Indication: ANXIETY
     Dosage: 25 MG
     Dates: start: 20070601

REACTIONS (1)
  - PRIAPISM [None]
